FAERS Safety Report 4575489-8 (Version None)
Quarter: 2005Q1

REPORT INFORMATION
  Report Type: 
  Country: None (occurrence: None)
  Receive Date: 20050131
  Receipt Date: 20050131
  Transmission Date: 20050727
  Serious: Yes (Disabling)
  Sender: FDA-Public Use
  Company Number: None

PATIENT
  Age: 42 Year
  Sex: Male

DRUGS (1)
  1. LARIAM [Suspect]
     Indication: MALARIA PROPHYLAXIS
     Dosage: WEEKLY    ORAL
     Route: 048
     Dates: start: 20050106, end: 20050113

REACTIONS (3)
  - ANXIETY [None]
  - DEPRESSION [None]
  - FEELING ABNORMAL [None]
